FAERS Safety Report 7971813-4 (Version None)
Quarter: 2011Q4

REPORT INFORMATION
  Report Type: 
  Country: None (occurrence: None)
  Receive Date: 20111122
  Receipt Date: 20110826
  Transmission Date: 20120403
  Serious: No
  Sender: FDA-Public Use
  Company Number: PHHY2011US53051

PATIENT
  Age: 46 Year
  Sex: Female

DRUGS (7)
  1. FLEXERIL [Concomitant]
  2. GLUCOSAMINE (GLUCOSAMINE) [Concomitant]
  3. ADVIL [Concomitant]
  4. VICODIN [Concomitant]
  5. SUMATRIPTAN (SUMATRIPTAN) [Concomitant]
  6. GILENYA [Suspect]
     Indication: MULTIPLE SCLEROSIS RELAPSE
     Dosage: 0.5 MG, DAILY, ORAL, 0.5 MG, BID, ORAL
     Route: 048
     Dates: start: 20110614
  7. GILENYA [Suspect]
     Indication: MULTIPLE SCLEROSIS RELAPSE
     Dosage: 0.5 MG, DAILY, ORAL, 0.5 MG, BID, ORAL
     Route: 048
     Dates: start: 20110511

REACTIONS (8)
  - HYPERHIDROSIS [None]
  - DIZZINESS [None]
  - ABDOMINAL PAIN UPPER [None]
  - FATIGUE [None]
  - PANIC ATTACK [None]
  - NERVOUSNESS [None]
  - FEELING HOT [None]
  - OVERDOSE [None]
